FAERS Safety Report 6298430-9 (Version None)
Quarter: 2009Q3

REPORT INFORMATION
  Report Type: 
  Country: None (occurrence: None)
  Receive Date: 20090805
  Receipt Date: 20090727
  Transmission Date: 20100115
  Serious: Yes (Other)
  Sender: FDA-Public Use
  Company Number: GR-ELI_LILLY_AND_COMPANY-GR200810007271

PATIENT
  Age: 54 Year
  Sex: Female
  Weight: 75 kg

DRUGS (8)
  1. CYMBALTA [Suspect]
     Indication: MAJOR DEPRESSION
     Dosage: 60 MG, DAILY (1/D)
     Route: 048
     Dates: start: 20071210, end: 20081010
  2. GLUCOPHAGE [Concomitant]
     Indication: DIABETES MELLITUS
     Dosage: 1 D/F, 2/D
     Dates: start: 20080601
  3. CRESTOR [Concomitant]
     Dosage: 1 D/F, DAILY (1/D)
     Dates: start: 20080601
  4. XANAX [Concomitant]
     Indication: ANXIETY
     Dosage: 0.5 MG, DAILY (1/D)
     Route: 065
     Dates: start: 20080601
  5. OMACOR [Concomitant]
     Indication: DYSLIPIDAEMIA
     Dosage: 2 D/F, DAILY (1/D)
     Route: 065
     Dates: start: 20080601
  6. FISH OIL [Concomitant]
     Dosage: UNK, UNKNOWN
     Route: 065
  7. PARIET [Concomitant]
     Indication: GASTROOESOPHAGEAL REFLUX DISEASE
     Dosage: 20 MG, DAILY (1/D)
     Route: 065
     Dates: start: 20080601
  8. TOCOPHEROL CONCENTRATE CAP [Concomitant]
     Dosage: UNK, UNKNOWN
     Route: 065

REACTIONS (2)
  - BLOOD CREATINE PHOSPHOKINASE INCREASED [None]
  - LICHEN PLANUS [None]
